FAERS Safety Report 6757823-3 (Version None)
Quarter: 2010Q2

REPORT INFORMATION
  Report Type: 
  Country: None (occurrence: None)
  Receive Date: 20100607
  Receipt Date: 20100524
  Transmission Date: 20101027
  Serious: Yes (Hospitalization)
  Sender: FDA-Public Use
  Company Number: PHHY2010GB32724

PATIENT
  Sex: Male

DRUGS (1)
  1. CLOZARIL [Suspect]
     Indication: SCHIZOPHRENIA
     Dosage: 250 MG, BID
     Route: 048
     Dates: start: 19990420

REACTIONS (4)
  - DRUG ABUSE [None]
  - ORTHOSTATIC HYPOTENSION [None]
  - OVERDOSE [None]
  - WATER INTOXICATION [None]
